FAERS Safety Report 9625936 (Version 1)
Quarter: 2013Q3

REPORT INFORMATION
  Report Type: Spontaneous
  Country: US (occurrence: None)
  Receive Date: 20130930
  Receipt Date: 20130930
  Transmission Date: 20140515
  Serious: Yes (Other)
  Sender: FDA-Public Use
  Company Number: 2013038109

PATIENT
  Sex: Female

DRUGS (1)
  1. PRIVIGEN [Suspect]
     Dosage: (INTRAVENOUS ( NOT OTHERWISE SPECIFIED)
     Route: 042

REACTIONS (6)
  - Hernia repair [None]
  - Nasal discomfort [None]
  - Oral pruritus [None]
  - Eye pruritus [None]
  - Ear pruritus [None]
  - Fatigue [None]
